FAERS Safety Report 18694370 (Version 1)
Quarter: 2020Q4

REPORT INFORMATION
  Report Type: Spontaneous
  Country: US (occurrence: US)
  Receive Date: 20201230
  Receipt Date: 20201230
  Transmission Date: 20210114
  Serious: Yes (Hospitalization)
  Sender: FDA-Public Use
  Company Number: None

PATIENT
  Age: 64 Year
  Sex: Female

DRUGS (2)
  1. SIROLIMUS 1MG GREENSTONE [Suspect]
     Active Substance: SIROLIMUS
     Indication: LUNG TRANSPLANT
     Route: 048
     Dates: start: 202007, end: 202008
  2. TACROLIMUS (ACCORD) ++ 0.5MG ACCORD HEALTHCARE [Suspect]
     Active Substance: TACROLIMUS
     Indication: LUNG TRANSPLANT
     Route: 048
     Dates: start: 202005

REACTIONS (1)
  - Hospitalisation [None]

NARRATIVE: CASE EVENT DATE: 20201004
